FAERS Safety Report 25462704 (Version 1)
Quarter: 2025Q2

REPORT INFORMATION
  Report Type: Spontaneous
  Country: DE (occurrence: DE)
  Receive Date: 20250620
  Receipt Date: 20250620
  Transmission Date: 20250716
  Serious: Yes (Other)
  Sender: MYLAN
  Company Number: DE-SANDOZ-SDZ2025DE039764

PATIENT
  Sex: Female

DRUGS (52)
  1. CELECOXIB [Suspect]
     Active Substance: CELECOXIB
     Indication: Axial spondyloarthritis
     Dates: start: 20210429, end: 20220302
  2. CELECOXIB [Suspect]
     Active Substance: CELECOXIB
     Dates: start: 20210429, end: 20220302
  3. CELECOXIB [Suspect]
     Active Substance: CELECOXIB
     Route: 065
     Dates: start: 20210429, end: 20220302
  4. CELECOXIB [Suspect]
     Active Substance: CELECOXIB
     Route: 065
     Dates: start: 20210429, end: 20220302
  5. CELECOXIB [Suspect]
     Active Substance: CELECOXIB
     Dates: start: 20220502, end: 20221010
  6. CELECOXIB [Suspect]
     Active Substance: CELECOXIB
     Dates: start: 20220502, end: 20221010
  7. CELECOXIB [Suspect]
     Active Substance: CELECOXIB
     Route: 065
     Dates: start: 20220502, end: 20221010
  8. CELECOXIB [Suspect]
     Active Substance: CELECOXIB
     Route: 065
     Dates: start: 20220502, end: 20221010
  9. ETORICOXIB [Suspect]
     Active Substance: ETORICOXIB
     Indication: Axial spondyloarthritis
  10. ETORICOXIB [Suspect]
     Active Substance: ETORICOXIB
  11. ETORICOXIB [Suspect]
     Active Substance: ETORICOXIB
     Route: 065
  12. ETORICOXIB [Suspect]
     Active Substance: ETORICOXIB
     Route: 065
  13. ETORICOXIB [Suspect]
     Active Substance: ETORICOXIB
     Route: 065
     Dates: start: 20180329, end: 20190908
  14. ETORICOXIB [Suspect]
     Active Substance: ETORICOXIB
     Route: 065
     Dates: start: 20180329, end: 20190908
  15. ETORICOXIB [Suspect]
     Active Substance: ETORICOXIB
     Dates: start: 20180329, end: 20190908
  16. ETORICOXIB [Suspect]
     Active Substance: ETORICOXIB
     Dates: start: 20180329, end: 20190908
  17. ETORICOXIB [Suspect]
     Active Substance: ETORICOXIB
     Route: 065
     Dates: start: 20191219, end: 20210428
  18. ETORICOXIB [Suspect]
     Active Substance: ETORICOXIB
     Dates: start: 20191219, end: 20210428
  19. ETORICOXIB [Suspect]
     Active Substance: ETORICOXIB
     Dates: start: 20191219, end: 20210428
  20. ETORICOXIB [Suspect]
     Active Substance: ETORICOXIB
     Route: 065
     Dates: start: 20191219, end: 20210428
  21. ETORICOXIB [Suspect]
     Active Substance: ETORICOXIB
     Dates: start: 20220303, end: 20220501
  22. ETORICOXIB [Suspect]
     Active Substance: ETORICOXIB
     Dates: start: 20220303, end: 20220501
  23. ETORICOXIB [Suspect]
     Active Substance: ETORICOXIB
     Route: 065
     Dates: start: 20220303, end: 20220501
  24. ETORICOXIB [Suspect]
     Active Substance: ETORICOXIB
     Route: 065
     Dates: start: 20220303, end: 20220501
  25. IBUPROFEN [Suspect]
     Active Substance: IBUPROFEN
     Indication: Axial spondyloarthritis
     Dates: start: 20190909, end: 20191219
  26. IBUPROFEN [Suspect]
     Active Substance: IBUPROFEN
     Route: 065
     Dates: start: 20190909, end: 20191219
  27. IBUPROFEN [Suspect]
     Active Substance: IBUPROFEN
     Route: 065
     Dates: start: 20190909, end: 20191219
  28. IBUPROFEN [Suspect]
     Active Substance: IBUPROFEN
     Dates: start: 20190909, end: 20191219
  29. COSENTYX [Suspect]
     Active Substance: SECUKINUMAB
     Indication: Axial spondyloarthritis
     Dates: start: 20180329, end: 20190118
  30. COSENTYX [Suspect]
     Active Substance: SECUKINUMAB
     Dates: start: 20180329, end: 20190118
  31. COSENTYX [Suspect]
     Active Substance: SECUKINUMAB
     Route: 065
     Dates: start: 20180329, end: 20190118
  32. COSENTYX [Suspect]
     Active Substance: SECUKINUMAB
     Route: 065
     Dates: start: 20180329, end: 20190118
  33. COSENTYX [Suspect]
     Active Substance: SECUKINUMAB
     Dates: start: 20190402, end: 20200301
  34. COSENTYX [Suspect]
     Active Substance: SECUKINUMAB
     Dates: start: 20190402, end: 20200301
  35. COSENTYX [Suspect]
     Active Substance: SECUKINUMAB
     Route: 065
     Dates: start: 20190402, end: 20200301
  36. COSENTYX [Suspect]
     Active Substance: SECUKINUMAB
     Route: 065
     Dates: start: 20190402, end: 20200301
  37. NAPROXEN [Suspect]
     Active Substance: NAPROXEN
     Indication: Axial spondyloarthritis
     Dates: start: 20221011, end: 20230115
  38. NAPROXEN [Suspect]
     Active Substance: NAPROXEN
     Route: 065
     Dates: start: 20221011, end: 20230115
  39. NAPROXEN [Suspect]
     Active Substance: NAPROXEN
     Route: 065
     Dates: start: 20221011, end: 20230115
  40. NAPROXEN [Suspect]
     Active Substance: NAPROXEN
     Dates: start: 20221011, end: 20230115
  41. RINVOQ [Suspect]
     Active Substance: UPADACITINIB
     Indication: Axial spondyloarthritis
     Dates: start: 20220328, end: 20221219
  42. RINVOQ [Suspect]
     Active Substance: UPADACITINIB
     Dates: start: 20220328, end: 20221219
  43. RINVOQ [Suspect]
     Active Substance: UPADACITINIB
     Route: 065
     Dates: start: 20220328, end: 20221219
  44. RINVOQ [Suspect]
     Active Substance: UPADACITINIB
     Route: 065
     Dates: start: 20220328, end: 20221219
  45. RINVOQ [Suspect]
     Active Substance: UPADACITINIB
     Dates: start: 20230102, end: 20230901
  46. RINVOQ [Suspect]
     Active Substance: UPADACITINIB
     Dates: start: 20230102, end: 20230901
  47. RINVOQ [Suspect]
     Active Substance: UPADACITINIB
     Route: 065
     Dates: start: 20230102, end: 20230901
  48. RINVOQ [Suspect]
     Active Substance: UPADACITINIB
     Route: 065
     Dates: start: 20230102, end: 20230901
  49. RINVOQ [Suspect]
     Active Substance: UPADACITINIB
  50. RINVOQ [Suspect]
     Active Substance: UPADACITINIB
     Route: 065
  51. RINVOQ [Suspect]
     Active Substance: UPADACITINIB
  52. RINVOQ [Suspect]
     Active Substance: UPADACITINIB
     Route: 065

REACTIONS (1)
  - Rotator cuff syndrome [Unknown]
